FAERS Safety Report 8564315-8 (Version None)
Quarter: 2012Q3

REPORT INFORMATION
  Report Type: 
  Country: None (occurrence: None)
  Receive Date: 20120803
  Receipt Date: 20120726
  Transmission Date: 20120928
  Serious: Yes (Other)
  Sender: FDA-Public Use
  Company Number: CA-JNJFOC-20120605446

PATIENT
  Sex: Male
  Weight: 62 kg

DRUGS (6)
  1. REMICADE [Suspect]
     Route: 042
     Dates: start: 20120607
  2. UNKNOWN MEDICATION [Concomitant]
     Route: 065
  3. REMICADE [Suspect]
     Route: 042
     Dates: start: 20120217
  4. ACETAMINOPHEN [Concomitant]
     Indication: PREMEDICATION
     Route: 048
  5. REMICADE [Suspect]
     Indication: CROHN'S DISEASE
     Route: 042
     Dates: start: 20110908
  6. BENADRYL [Concomitant]
     Indication: PREMEDICATION
     Route: 048

REACTIONS (5)
  - DIARRHOEA [None]
  - ABDOMINAL PAIN [None]
  - HAEMATOCHEZIA [None]
  - WEIGHT INCREASED [None]
  - GASTROINTESTINAL SOUNDS ABNORMAL [None]
